FAERS Safety Report 9230259 (Version 1)
Quarter: 2013Q2

REPORT INFORMATION
  Report Type: Spontaneous
  Country: US (occurrence: None)
  Receive Date: 20130411
  Receipt Date: 20130411
  Transmission Date: 20140414
  Serious: Yes (Hospitalization)
  Sender: FDA-Public Use
  Company Number: 2013AP004211

PATIENT
  Age: 46 Year
  Sex: Male

DRUGS (4)
  1. SERTRALINE HYDROCHLORIDE TABLETS [Suspect]
     Indication: DEPRESSION
  2. NYQUIL [Suspect]
     Indication: NASOPHARYNGITIS
     Route: 048
  3. METFORMIN [Concomitant]
  4. LEVOTHYROXINE SODIUM [Concomitant]

REACTIONS (5)
  - Serotonin syndrome [None]
  - Drug interaction [None]
  - Nasopharyngitis [None]
  - Cough [None]
  - Insomnia [None]
